FAERS Safety Report 12694086 (Version 1)
Quarter: 2016Q3

REPORT INFORMATION
  Report Type: Spontaneous
  Country: US (occurrence: US)
  Receive Date: 20160829
  Receipt Date: 20160829
  Transmission Date: 20161109
  Serious: Yes (Death, Hospitalization, Other)
  Sender: FDA-Public Use
  Company Number: US-PURDUE-USA-2010-0059193

PATIENT
  Sex: Female

DRUGS (1)
  1. OXYCONTIN [Suspect]
     Active Substance: OXYCODONE HYDROCHLORIDE
     Indication: PRODUCT USED FOR UNKNOWN INDICATION
     Dosage: 30 MG, TID
     Dates: start: 2004

REACTIONS (21)
  - Gastrooesophageal reflux disease [Unknown]
  - Feeling abnormal [Unknown]
  - Pain [Unknown]
  - Feeling jittery [Unknown]
  - Facial paralysis [Unknown]
  - Dysarthria [Unknown]
  - Fall [Unknown]
  - Agitation [Unknown]
  - Anxiety [Unknown]
  - Cerebrovascular accident [Fatal]
  - Atrial fibrillation [Unknown]
  - Gangrene [Unknown]
  - Hemiparesis [Unknown]
  - Confusional state [Unknown]
  - Hypothyroidism [Unknown]
  - Heart rate increased [Unknown]
  - Tremor [Unknown]
  - Drug withdrawal syndrome [Unknown]
  - Peripheral vascular disorder [Unknown]
  - Peripheral embolism [Unknown]
  - Deep vein thrombosis [Unknown]

NARRATIVE: CASE EVENT DATE: 20081017
